FAERS Safety Report 6726960-1 (Version None)
Quarter: 2010Q2

REPORT INFORMATION
  Report Type: 
  Country: None (occurrence: None)
  Receive Date: 20100517
  Receipt Date: 20100507
  Transmission Date: 20101027
  Serious: No
  Sender: FDA-Public Use
  Company Number: 2009BI033299

PATIENT
  Age: 41 Year
  Sex: Female

DRUGS (1)
  1. TYSABRI [Suspect]
     Indication: MULTIPLE SCLEROSIS
     Route: 042
     Dates: start: 20090220

REACTIONS (12)
  - ABASIA [None]
  - ASTHENIA [None]
  - BACK PAIN [None]
  - DEAFNESS UNILATERAL [None]
  - HEADACHE [None]
  - HYPOAESTHESIA [None]
  - LOSS OF CONTROL OF LEGS [None]
  - MOBILITY DECREASED [None]
  - PAIN IN EXTREMITY [None]
  - PRURITUS [None]
  - SOMNOLENCE [None]
  - VISION BLURRED [None]
